FAERS Safety Report 15164250 (Version 7)
Quarter: 2023Q4

REPORT INFORMATION
  Report Type: Spontaneous
  Country: US (occurrence: US)
  Receive Date: 20180719
  Receipt Date: 20231222
  Transmission Date: 20240110
  Serious: No
  Sender: FDA-Public Use
  Company Number: US-PFIZER INC-2018289352

PATIENT
  Age: 74 Year
  Sex: Female
  Weight: 53.1 kg

DRUGS (4)
  1. IBRANCE [Suspect]
     Active Substance: PALBOCICLIB
     Indication: Breast cancer metastatic
     Dosage: 125 MG, UNK
  2. IBRANCE [Suspect]
     Active Substance: PALBOCICLIB
     Indication: Breast cancer female
     Dosage: 75 MG/1 CAPSULE, ONCE DAILY, 7 DAYS A WEEK: EVERY OTHER WEEK
     Route: 048
  3. IBRANCE [Suspect]
     Active Substance: PALBOCICLIB
     Dosage: 75 MG/ONE PILL ONCE DAILY, 21 DAYS ON AND 7 DAYS OFF
     Route: 048
  4. IBRANCE [Suspect]
     Active Substance: PALBOCICLIB
     Dosage: 75 MG/ONE PILL FOR 7 DAYS THEN 7 DAYS OFF
     Route: 048

REACTIONS (2)
  - Illness [Unknown]
  - Off label use [Unknown]
